FAERS Safety Report 4664220-3 (Version None)
Quarter: 2005Q2

REPORT INFORMATION
  Report Type: 
  Country: None (occurrence: None)
  Receive Date: 20050510
  Receipt Date: 20050321
  Transmission Date: 20051028
  Serious: Yes (Other)
  Sender: FDA-Public Use
  Company Number: 602769

PATIENT
  Sex: Male

DRUGS (2)
  1. HEMOFIL [Suspect]
     Indication: HAEMOPHILIA
     Dosage: UNKNOWN
     Route: 065
  2. PROPLEX T [Suspect]
     Indication: HAEMOPHILIA
     Dosage: UNKNOWN
     Route: 065

REACTIONS (2)
  - ADVERSE EVENT [None]
  - PHARMACEUTICAL PRODUCT COMPLAINT [None]
